FAERS Safety Report 15701418 (Version 1)
Quarter: 2018Q4

REPORT INFORMATION
  Report Type: Spontaneous
  Country: GB (occurrence: GB)
  Receive Date: 20181207
  Receipt Date: 20181207
  Transmission Date: 20190205
  Serious: Yes (Death)
  Sender: FDA-Public Use
  Company Number: GB-TEVA-2018-GB-983441

PATIENT
  Age: 57 Year
  Sex: Female

DRUGS (2)
  1. MIRTAZAPINE. [Suspect]
     Active Substance: MIRTAZAPINE
     Route: 065
     Dates: end: 20170115
  2. TRAMADOL. [Suspect]
     Active Substance: TRAMADOL
     Route: 065
     Dates: end: 20170115

REACTIONS (1)
  - Toxicity to various agents [Fatal]
